FAERS Safety Report 8378575-X (Version None)
Quarter: 2012Q2

REPORT INFORMATION
  Report Type: 
  Country: None (occurrence: None)
  Receive Date: 20120522
  Receipt Date: 20120217
  Transmission Date: 20120825
  Serious: No
  Sender: FDA-Public Use
  Company Number: US-ASTRAZENECA-2012SE11611

PATIENT
  Age: 53 Year
  Sex: Male

DRUGS (10)
  1. PRILOSEC [Suspect]
     Route: 048
  2. SYMBICORT [Concomitant]
  3. MOTRIN [Concomitant]
  4. FLONASE [Concomitant]
  5. VENTOLIN [Concomitant]
  6. PROVENTIL [Concomitant]
  7. ZYRTEC [Concomitant]
     Indication: MULTIPLE ALLERGIES
  8. ALBUTEROL [Concomitant]
  9. PHENARGAN WITH CODEINE [Concomitant]
  10. OMNARIS [Concomitant]

REACTIONS (3)
  - COUGH [None]
  - ASTHMA [None]
  - SINUSITIS [None]
